FAERS Safety Report 14826699 (Version 2)
Quarter: 2019Q3

REPORT INFORMATION
  Report Type: Report from Study
  Country: FR (occurrence: FR)
  Receive Date: 20180430
  Receipt Date: 20190731
  Transmission Date: 20191004
  Serious: Yes (Death, Other)
  Sender: FDA-Public Use
  Company Number: FR-JAZZ-2018-FR-006651

PATIENT

DRUGS (2)
  1. DEFITELIO [Suspect]
     Active Substance: DEFIBROTIDE SODIUM
     Indication: PROPHYLAXIS
     Dosage: 21.9 MG/KG, QD
     Route: 042
     Dates: start: 20150310, end: 20150505
  2. DEFITELIO [Suspect]
     Active Substance: DEFIBROTIDE SODIUM
     Indication: VENOOCCLUSIVE LIVER DISEASE

REACTIONS (9)
  - Drug ineffective [Unknown]
  - Oesophageal candidiasis [Unknown]
  - Product use in unapproved indication [Unknown]
  - Graft versus host disease in liver [Fatal]
  - Transplantation complication [Fatal]
  - Graft versus host disease in gastrointestinal tract [Fatal]
  - Adenovirus infection [Fatal]
  - Underdose [Unknown]
  - Venoocclusive liver disease [Fatal]

NARRATIVE: CASE EVENT DATE: 20150310
